APPROVED DRUG PRODUCT: CARBAMAZEPINE
Active Ingredient: CARBAMAZEPINE
Strength: 100MG
Dosage Form/Route: TABLET, EXTENDED RELEASE;ORAL
Application: A212704 | Product #001
Applicant: AMNEAL PHARMACEUTICALS OF NEW YORK LLC
Approved: Sep 22, 2023 | RLD: No | RS: No | Type: DISCN